FAERS Safety Report 6039124-4 (Version None)
Quarter: 2009Q1

REPORT INFORMATION
  Report Type: 
  Country: None (occurrence: None)
  Receive Date: 20090115
  Receipt Date: 20090107
  Transmission Date: 20090719
  Serious: Yes (Death)
  Sender: FDA-Public Use
  Company Number: US-BAXTER-2009BH000524

PATIENT
  Age: 43 Year
  Sex: Female

DRUGS (4)
  1. HYDROMORPHONE HCL [Suspect]
     Indication: DRUG ABUSE
     Route: 065
     Dates: start: 20060101
  2. HYDROMORPHONE HCL [Suspect]
     Indication: PAIN
     Route: 065
     Dates: start: 20060101
  3. BENADRYL [Concomitant]
     Indication: HYPERSENSITIVITY
     Route: 048
  4. CONCERTA [Concomitant]
     Indication: DEPRESSION
     Route: 048

REACTIONS (3)
  - COMPLETED SUICIDE [None]
  - DRUG ABUSE [None]
  - GUN SHOT WOUND [None]
